FAERS Safety Report 5425228-3 (Version None)
Quarter: 2007Q3

REPORT INFORMATION
  Report Type: 
  Country: None (occurrence: None)
  Receive Date: 20070824
  Receipt Date: 20070816
  Transmission Date: 20080115
  Serious: Yes (Other)
  Sender: FDA-Public Use
  Company Number: US-SANOFI-SYNTHELABO-A03200705161

PATIENT
  Sex: Female

DRUGS (10)
  1. PRILOSEC [Concomitant]
     Dosage: UNK
     Route: 065
  2. NEXIUM [Concomitant]
     Dosage: UNK
     Route: 065
  3. COQ-10 [Concomitant]
     Dosage: UNK
     Route: 065
  4. ASPIRIN [Concomitant]
     Route: 065
  5. ZETIA [Concomitant]
     Dosage: UNK
     Route: 065
  6. COZAAR [Concomitant]
     Dosage: UNK
     Route: 065
  7. TOPROL-XL [Concomitant]
     Dosage: UNK
     Route: 065
  8. CLOPIDOGREL [Suspect]
     Indication: CORONARY ARTERIAL STENT INSERTION
     Route: 048
     Dates: start: 20070101, end: 20070101
  9. PLAVIX [Suspect]
     Indication: CORONARY ARTERIAL STENT INSERTION
     Route: 048
     Dates: start: 20060401, end: 20070101
  10. PLAVIX [Suspect]
     Route: 048
     Dates: start: 20070101

REACTIONS (3)
  - BASAL CELL CARCINOMA [None]
  - MALIGNANT MELANOMA [None]
  - RASH [None]
